FAERS Safety Report 8614512-8 (Version None)
Quarter: 2012Q3

REPORT INFORMATION
  Report Type: 
  Country: None (occurrence: None)
  Receive Date: 20120810
  Receipt Date: 20120223
  Transmission Date: 20120928
  Serious: Yes (Hospitalization, Other)
  Sender: FDA-Public Use
  Company Number: INT_00057_2012

PATIENT
  Age: 24 Month
  Sex: Male
  Weight: 13 kg

DRUGS (2)
  1. VANCOMYCIN [Suspect]
     Indication: MENINGITIS
     Dosage: 65 MG/KG/DAY
  2. CEFTRIAXONE [Suspect]
     Indication: MENINGITIS
     Dosage: 100 MG/KG/DAY

REACTIONS (2)
  - URINARY RETENTION [None]
  - HYPERURICOSURIA [None]
